FAERS Safety Report 7659960-8 (Version None)
Quarter: 2011Q3

REPORT INFORMATION
  Report Type: 
  Country: None (occurrence: None)
  Receive Date: 20110805
  Receipt Date: 20110729
  Transmission Date: 20111222
  Serious: Yes (Death, Other)
  Sender: FDA-Public Use
  Company Number: JP-CEPHALON-2011001391

PATIENT
  Sex: Male
  Weight: 69 kg

DRUGS (5)
  1. ASPIRIN [Concomitant]
  2. GRANISETRON HYDROCHLORIDE [Concomitant]
     Dates: start: 20110209, end: 20110210
  3. BENIDIPINE HCL [Concomitant]
  4. BENDAMUSTINE HCL [Suspect]
     Indication: MANTLE CELL LYMPHOMA
     Route: 042
     Dates: start: 20110108, end: 20110109
  5. BENDAMUSTINE HCL [Suspect]
     Route: 042
     Dates: start: 20110209, end: 20110210

REACTIONS (10)
  - PLATELET COUNT DECREASED [None]
  - PROTEIN URINE PRESENT [None]
  - DISSEMINATED INTRAVASCULAR COAGULATION [None]
  - PNEUMONIA [None]
  - LYMPHOCYTE COUNT DECREASED [None]
  - WHITE BLOOD CELL COUNT DECREASED [None]
  - NEUTROPHIL COUNT DECREASED [None]
  - BLOOD LACTATE DEHYDROGENASE INCREASED [None]
  - BLOOD AMYLASE INCREASED [None]
  - ANAEMIA [None]
